FAERS Safety Report 23798561 (Version 1)
Quarter: 2024Q2

REPORT INFORMATION
  Report Type: Spontaneous
  Country: US (occurrence: None)
  Receive Date: 20240424
  Receipt Date: 20240424
  Transmission Date: 20240716
  Serious: Yes (Hospitalization)
  Sender: FDA-Public Use
  Company Number: None

PATIENT
  Age: 73 Year
  Sex: Male

DRUGS (2)
  1. ASPIRIN [Suspect]
     Active Substance: ASPIRIN
     Indication: Vascular device user
     Dosage: 81 MG EVERY DAY PO
     Route: 048
     Dates: start: 20180314, end: 20240126
  2. TICAGRELOR [Suspect]
     Active Substance: TICAGRELOR
     Indication: Vascular device user
     Dosage: 90 MG BID PO?
     Route: 048
     Dates: start: 20231116, end: 20240126

REACTIONS (20)
  - Retroperitoneal haemorrhage [None]
  - Neoplasm malignant [None]
  - Flank pain [None]
  - Subcapsular renal haematoma [None]
  - Hydronephrosis [None]
  - Renal haemorrhage [None]
  - Diverticulum intestinal [None]
  - Red blood cell transfusion [None]
  - Acute myocardial infarction [None]
  - Coronary artery occlusion [None]
  - Coronary artery disease [None]
  - Left ventricular hypertrophy [None]
  - Mitral valve incompetence [None]
  - Aortic stenosis [None]
  - Sinus tachycardia [None]
  - Electrocardiogram ST-T segment abnormal [None]
  - Electrocardiogram T wave inversion [None]
  - Therapy interrupted [None]
  - Renal mass [None]
  - Haematuria [None]

NARRATIVE: CASE EVENT DATE: 20240125
